FAERS Safety Report 22055428 (Version 2)
Quarter: 2023Q2

REPORT INFORMATION
  Report Type: Spontaneous
  Country: US (occurrence: US)
  Receive Date: 20230302
  Receipt Date: 20230406
  Transmission Date: 20230721
  Serious: Yes (Hospitalization)
  Sender: FDA-Public Use
  Company Number: US-PARATEK PHARMACEUTICALS, INC.-2023PTK00071

PATIENT
  Age: 64 Year
  Sex: Female
  Weight: 84.354 kg

DRUGS (23)
  1. NUZYRA [Suspect]
     Active Substance: OMADACYCLINE
     Indication: Skin infection
     Dosage: 300 MG, 1X/DAY
     Route: 048
     Dates: start: 20230203, end: 20230210
  2. NUZYRA [Suspect]
     Active Substance: OMADACYCLINE
     Indication: Staphylococcal infection
  3. ASCORBIC ACID [Concomitant]
     Active Substance: ASCORBIC ACID
  4. ATORVASTATIN [Concomitant]
     Active Substance: ATORVASTATIN
  5. BIOTIN [Concomitant]
     Active Substance: BIOTIN
  6. CARVEDILOL [Concomitant]
     Active Substance: CARVEDILOL
  7. CYANOCOBALAMIN [Concomitant]
     Active Substance: CYANOCOBALAMIN
  8. VITAMIN D NOS [Concomitant]
     Active Substance: VITAMIN D NOS
  9. COLACE [Concomitant]
     Active Substance: DOCUSATE SODIUM
  10. ELIQUIS [Concomitant]
     Active Substance: APIXABAN
  11. LEXAPRO [Concomitant]
     Active Substance: ESCITALOPRAM OXALATE
  12. IRON [Concomitant]
     Active Substance: IRON
  13. GABAPENTIN [Concomitant]
     Active Substance: GABAPENTIN
  14. AMARYL [Concomitant]
     Active Substance: GLIMEPIRIDE
  15. ATARAX [Concomitant]
     Active Substance: HYDROXYZINE HYDROCHLORIDE
  16. XYZAL [Concomitant]
     Active Substance: LEVOCETIRIZINE DIHYDROCHLORIDE
  17. VITAMINS [Concomitant]
     Active Substance: VITAMINS
  18. PERCOCET [Concomitant]
     Active Substance: ACETAMINOPHEN\OXYCODONE HYDROCHLORIDE
  19. VITAMIN E [Concomitant]
     Active Substance: .ALPHA.-TOCOPHEROL
  20. VITAMIN B1 [Concomitant]
     Active Substance: THIAMINE HYDROCHLORIDE
  21. ZANAFLEX [Concomitant]
     Active Substance: TIZANIDINE HYDROCHLORIDE
  22. ZINC [Concomitant]
     Active Substance: ZINC
  23. DIETARY SUPPLEMENT\HERBALS\MILK THISTLE [Concomitant]
     Active Substance: MILK THISTLE

REACTIONS (2)
  - Angioedema [Recovered/Resolved]
  - Incorrect dose administered [Recovered/Resolved]

NARRATIVE: CASE EVENT DATE: 20230203
